FAERS Safety Report 7484984-3 (Version None)
Quarter: 2011Q1

REPORT INFORMATION
  Report Type: 
  Country: None (occurrence: None)
  Receive Date: 20110310
  Receipt Date: 20110202
  Transmission Date: 20110831
  Serious: Yes (Other)
  Sender: FDA-Public Use
  Company Number: 2011-00167

PATIENT
  Age: 74 Year
  Sex: Male
  Weight: 78.4723 kg

DRUGS (5)
  1. FUROSEMIDE [Concomitant]
  2. METOPROLOL TARTRATE [Concomitant]
  3. BENAZEPRIL HYDROCHLORIDE [Concomitant]
  4. SIMVASTATIN [Suspect]
     Indication: BLOOD CHOLESTEROL INCREASED
     Dosage: 80 MG (80 MG, 1 IN 1 D), PER ORAL
     Route: 048
     Dates: start: 20101123, end: 20101222
  5. AMLODIPINE [Concomitant]

REACTIONS (1)
  - RHABDOMYOLYSIS [None]
